FAERS Safety Report 11735352 (Version 1)
Quarter: 2015Q4

REPORT INFORMATION
  Report Type: Other
  Country: GB (occurrence: GB)
  Receive Date: 20151113
  Receipt Date: 20151113
  Transmission Date: 20160304
  Serious: Yes (Disabling, Other)
  Sender: FDA-Public Use
  Company Number: GB-MYLANLABS-2015M1038185

PATIENT

DRUGS (3)
  1. LITHIUM CARBONATE. [Concomitant]
     Active Substance: LITHIUM CARBONATE
     Dosage: UNK (STOPPED)
  2. SERTRALINE HYDROCHLORIDE. [Concomitant]
     Active Substance: SERTRALINE HYDROCHLORIDE
     Dosage: UNK
  3. QUETIAPINE FUMARATE. [Suspect]
     Active Substance: QUETIAPINE FUMARATE
     Indication: BIPOLAR DISORDER
     Dosage: UNK (200-400MG)
     Route: 048
     Dates: start: 20110308, end: 20151018

REACTIONS (16)
  - Lethargy [Recovering/Resolving]
  - Blood potassium increased [Unknown]
  - Dysphagia [Recovering/Resolving]
  - Decreased interest [Recovering/Resolving]
  - Tremor [Recovering/Resolving]
  - Night sweats [Recovering/Resolving]
  - Sedation [Recovering/Resolving]
  - Hypersomnia [Recovering/Resolving]
  - Mental impairment [Recovering/Resolving]
  - Myalgia [Recovering/Resolving]
  - Hunger [Recovering/Resolving]
  - Apathy [Recovering/Resolving]
  - Musculoskeletal stiffness [Recovering/Resolving]
  - Blood glucose decreased [Recovering/Resolving]
  - Amnesia [Recovering/Resolving]
  - Bipolar disorder [Unknown]

NARRATIVE: CASE EVENT DATE: 20130608
